FAERS Safety Report 14137194 (Version 1)
Quarter: 2017Q4

REPORT INFORMATION
  Report Type: Spontaneous
  Country: CA (occurrence: CA)
  Receive Date: 20171027
  Receipt Date: 20171027
  Transmission Date: 20180321
  Serious: Yes (Other)
  Sender: FDA-Public Use
  Company Number: CA-GLAXOSMITHKLINE-A1073425A

PATIENT
  Age: 65 Year
  Sex: Female
  Weight: 99 kg

DRUGS (5)
  1. BENLYSTA [Suspect]
     Active Substance: BELIMUMAB
     Indication: SYSTEMIC LUPUS ERYTHEMATOSUS
     Dosage: INFUSION AT WEEK 0, 2, 4 THEN EVERY 4 WEEKS
     Route: 042
     Dates: start: 20140513
  2. BENLYSTA [Suspect]
     Active Substance: BELIMUMAB
     Dosage: 1000 MG, UNK
     Route: 042
  3. BENLYSTA [Suspect]
     Active Substance: BELIMUMAB
     Dosage: 830 MG, UNK
  4. BENLYSTA [Suspect]
     Active Substance: BELIMUMAB
     Dosage: 990 MG, UNK
     Route: 042
  5. BENLYSTA [Suspect]
     Active Substance: BELIMUMAB
     Dosage: 920 MG, UNK

REACTIONS (13)
  - Musculoskeletal stiffness [Unknown]
  - Oral disorder [Unknown]
  - Fatigue [Recovered/Resolved]
  - Systemic lupus erythematosus [Unknown]
  - Head discomfort [Unknown]
  - Purulent discharge [Not Recovered/Not Resolved]
  - Emotional disorder [Unknown]
  - Tooth abscess [Unknown]
  - Pain [Unknown]
  - Hypersomnia [Unknown]
  - Gingival abscess [Not Recovered/Not Resolved]
  - Feeling drunk [Unknown]
  - Malaise [Unknown]

NARRATIVE: CASE EVENT DATE: 20140513
